FAERS Safety Report 4313462-5 (Version None)
Quarter: 2004Q1

REPORT INFORMATION
  Report Type: 
  Country: None (occurrence: None)
  Receive Date: 20040304
  Receipt Date: 20040213
  Transmission Date: 20041129
  Serious: Yes (Death)
  Sender: FDA-Public Use
  Company Number: USA-2003-0007632

PATIENT
  Age: 43 Year
  Sex: Male
  Weight: 99.8 kg

DRUGS (7)
  1. OXYCONTIN [Suspect]
     Indication: PAIN
  2. ALCOHOL (ETHANOL) [Suspect]
  3. ENDOCET (OXYCODONE HYDROCHLORIDE, PARACETAMOL) [Suspect]
     Indication: PAIN
  4. ACETAMINOPHEN W/ CODEINE [Suspect]
     Indication: PAIN
  5. VICOPROFEN [Suspect]
     Indication: PAIN
  6. TEMAZEPAM [Suspect]
  7. CAFEEINE (CAFFEINE) [Suspect]

REACTIONS (14)
  - ACUTE PULMONARY OEDEMA [None]
  - ALCOHOL POISONING [None]
  - BLADDER DISTENSION [None]
  - BRAIN OEDEMA [None]
  - CARDIOMEGALY [None]
  - COMA [None]
  - COMPLETED SUICIDE [None]
  - DRUG TOXICITY [None]
  - HEPATIC CIRRHOSIS [None]
  - INTENTIONAL OVERDOSE [None]
  - OSTEOARTHRITIS [None]
  - PAPILLARY THYROID CANCER [None]
  - RESPIRATORY ARREST [None]
  - THYROID NEOPLASM [None]
